FAERS Safety Report 4394222-6 (Version None)
Quarter: 2004Q3

REPORT INFORMATION
  Report Type: 
  Country: None (occurrence: None)
  Receive Date: 20040712
  Receipt Date: 20040618
  Transmission Date: 20050211
  Serious: Yes (Other)
  Sender: FDA-Public Use
  Company Number: PHBS2004JP08069

PATIENT
  Age: 37 Year
  Sex: Male

DRUGS (11)
  1. TEGRETOL [Suspect]
     Indication: SCHIZOPHRENIA
     Dosage: 900 MG/DAY
     Route: 048
     Dates: start: 20030107, end: 20040609
  2. PURSENNID [Concomitant]
     Indication: CONSTIPATION
     Dosage: 1 DF/DAY
     Route: 048
     Dates: start: 20030117, end: 20040612
  3. LANDSEN [Suspect]
     Indication: SCHIZOPHRENIA
     Dosage: 5 MG/DAY
     Route: 048
     Dates: start: 20030130, end: 20040612
  4. HALOPERIDOL [Concomitant]
     Indication: SCHIZOPHRENIA
     Dosage: 21 MG/DAY
     Route: 048
     Dates: start: 20020701, end: 20040612
  5. TASMOLIN [Concomitant]
     Indication: PARKINSONISM
     Dosage: 3 MG/DAY
     Route: 048
     Dates: start: 20030130, end: 20040612
  6. SULTOPRIDE HYDROCHLORIDE [Concomitant]
     Indication: SCHIZOPHRENIA
     Dosage: 2200 TO 1800 MG/DAY
     Route: 048
     Dates: end: 20040612
  7. KAMAG G [Concomitant]
     Indication: CONSTIPATION
     Dosage: 2 G/DAY
     Route: 048
     Dates: start: 20020701, end: 20040612
  8. FLUNITRAZEPAM [Concomitant]
     Indication: INSOMNIA
     Dosage: 2 MG/DAY
     Route: 048
     Dates: start: 20030117, end: 20040612
  9. BENZALIN [Concomitant]
     Indication: INSOMNIA
     Dosage: 20 MG/DAY
     Route: 048
     Dates: start: 20030107, end: 20040612
  10. GASTER [Concomitant]
     Indication: GASTRITIS
     Dosage: 20 MG/DAY
     Route: 048
     Dates: start: 20040102, end: 20040612
  11. SELBEX [Concomitant]
     Indication: GASTRITIS
     Dosage: 1.5 G/DAY
     Route: 048
     Dates: start: 20030121, end: 20040612

REACTIONS (7)
  - CATAPLEXY [None]
  - CONDITION AGGRAVATED [None]
  - GRAND MAL CONVULSION [None]
  - PANCYTOPENIA [None]
  - PSYCHIATRIC SYMPTOM [None]
  - STUPOR [None]
  - WHITE BLOOD CELL COUNT DECREASED [None]
